FAERS Safety Report 9482784 (Version 1)
Quarter: 2013Q3

REPORT INFORMATION
  Report Type: Spontaneous
  Country: FR (occurrence: FR)
  Receive Date: 20130828
  Receipt Date: 20130828
  Transmission Date: 20140515
  Serious: Yes (Hospitalization)
  Sender: FDA-Public Use
  Company Number: FR-PFIZER INC-2013244681

PATIENT
  Age: 61 Year
  Sex: Female

DRUGS (7)
  1. SOLU-MEDROL [Suspect]
     Indication: PREMEDICATION
     Dosage: 80 MG, 1X/DAY
     Route: 042
     Dates: start: 20130521
  2. DOCETAXEL SANDOZ [Suspect]
     Indication: BREAST CANCER
     Dosage: 170 MG, 1X/DAY
     Route: 042
     Dates: start: 20130521, end: 20130610
  3. ONDANSETRON AGUETTANT [Suspect]
     Indication: PREMEDICATION
     Dosage: 8 MG, 1X/DAY
     Route: 042
     Dates: start: 20130521
  4. METFORMIN [Concomitant]
  5. COVERSYL [Concomitant]
  6. KARDEGIC [Concomitant]
  7. ATORVASTATIN [Concomitant]

REACTIONS (1)
  - Palmar-plantar erythrodysaesthesia syndrome [Recovered/Resolved]
